FAERS Safety Report 5662494-3 (Version None)
Quarter: 2008Q1

REPORT INFORMATION
  Report Type: 
  Country: None (occurrence: None)
  Receive Date: 20080213
  Receipt Date: 20080108
  Transmission Date: 20080703
  Serious: Yes (Disabling, Other)
  Sender: FDA-Public Use
  Company Number: PHEH2008US00715

PATIENT
  Age: 61 Year
  Sex: Female

DRUGS (1)
  1. RECLAST [Suspect]
     Indication: OSTEOPOROSIS
     Dosage: 5 MG, ONCE YEARLY, INFUSION
     Dates: start: 20071228

REACTIONS (7)
  - ABASIA [None]
  - ARTHRALGIA [None]
  - BEDRIDDEN [None]
  - FATIGUE [None]
  - GROIN PAIN [None]
  - INFLUENZA LIKE ILLNESS [None]
  - WEIGHT BEARING DIFFICULTY [None]
